FAERS Safety Report 17662489 (Version 1)
Quarter: 2020Q2

REPORT INFORMATION
  Report Type: Spontaneous
  Country: NL (occurrence: NL)
  Receive Date: 20200413
  Receipt Date: 20200413
  Transmission Date: 20200713
  Serious: Yes (Other)
  Sender: FDA-Public Use
  Company Number: NL-MYLANLABS-2020M1037190

PATIENT
  Age: 73 Year
  Sex: Female
  Weight: 83 kg

DRUGS (7)
  1. CEFUROXIM                          /00454601/ [Concomitant]
     Active Substance: CEFUROXIME
     Dosage: INJECTIEVLOEISTOF
  2. CHLOROQUINE. [Interacting]
     Active Substance: CHLOROQUINE
     Indication: CORONAVIRUS INFECTION
     Dosage: TABLET, 100 MG, 2 X PER DAG 3 STUKS, 1E DOSIS 6 STUKS
     Dates: start: 20200305, end: 20200309
  3. LITHIUMCARBONAAT [Interacting]
     Active Substance: LITHIUM CARBONATE
     Indication: BIPOLAR II DISORDER
     Dosage: 300 MG, 1 X PER DAG 1 STUK
     Dates: start: 20200309
  4. PARACETAMOL [Concomitant]
     Active Substance: ACETAMINOPHEN
     Dosage: INFUSIEVLOEISTOF, 10 MG/ML (MILLIGRAM PER MILLILITER)
  5. DALTEPARIN [Concomitant]
     Active Substance: DALTEPARIN
     Dosage: INJECTIEVLOEISTOF, 25.000 IE/ML (EENHEDEN PER MILLILITER)
  6. QUETIAPINE. [Suspect]
     Active Substance: QUETIAPINE
     Indication: BIPOLAR II DISORDER
     Dosage: TABLET MVA, 300 MG, 1 X PER DAG 1 STUK
     Dates: start: 2013
  7. OXAZEPAM. [Concomitant]
     Active Substance: OXAZEPAM
     Dosage: TABLET, 5 MG (MILLIGRAM)

REACTIONS (2)
  - Electrocardiogram QT prolonged [Not Recovered/Not Resolved]
  - Potentiating drug interaction [Not Recovered/Not Resolved]

NARRATIVE: CASE EVENT DATE: 20200310
